FAERS Safety Report 9492045 (Version 3)
Quarter: 2013Q4

REPORT INFORMATION
  Report Type: Report from Study
  Country: BR (occurrence: BR)
  Receive Date: 20130830
  Receipt Date: 20131004
  Transmission Date: 20140711
  Serious: Yes (Other)
  Sender: FDA-Public Use
  Company Number: PHHY2013BR082315

PATIENT
  Sex: Male
  Weight: 62 kg

DRUGS (12)
  1. TRILEPTAL [Suspect]
     Indication: NEURALGIA
     Dosage: 1 DF, BID
     Route: 048
     Dates: start: 2011
  2. OMEPRAZOLE [Concomitant]
     Indication: ABDOMINAL DISCOMFORT
     Dosage: 40 MG, UNK
     Route: 048
  3. OMEPRAZOLE [Concomitant]
     Dosage: 2 DF (20 MG) IN THE MORNING
     Route: 048
  4. KITAPEN [Concomitant]
     Indication: INSOMNIA
     Dosage: UNK UKN, UNK
  5. KITAPEN [Concomitant]
     Indication: BIPOLAR DISORDER
  6. LYRICA [Concomitant]
     Indication: SCIATICA
     Dosage: 2 DF, DAILY
     Route: 048
  7. ACTONEL [Concomitant]
     Indication: OSTEOPOROSIS
     Dosage: UNK UKN, UNK
  8. DEPURA [Concomitant]
     Indication: VITAMIN D DEFICIENCY
     Dosage: 5 DRP, DAILY
     Route: 048
  9. QUETIAPINE [Concomitant]
     Indication: BIPOLAR DISORDER
     Dosage: UNK UKN, UNK
     Route: 048
  10. DEOCIL [Concomitant]
     Dosage: UNK UKN, UNK
     Route: 048
  11. DORFLEX [Concomitant]
     Dosage: UNK UKN, UNK
  12. PROFENID [Concomitant]
     Dosage: UNK UKN, UNK

REACTIONS (4)
  - Fall [Recovered/Resolved]
  - Foot fracture [Recovered/Resolved]
  - Cardiac disorder [Recovered/Resolved]
  - Heart rate abnormal [Recovered/Resolved]
